FAERS Safety Report 9565279 (Version 5)
Quarter: 2013Q4

REPORT INFORMATION
  Report Type: Report from Study
  Country: HU (occurrence: HU)
  Receive Date: 20130930
  Receipt Date: 20131215
  Transmission Date: 20140711
  Serious: Yes (Death, Hospitalization)
  Sender: FDA-Public Use
  Company Number: HU-PFIZER INC-2013232022

PATIENT
  Age: 57 Year
  Sex: Female
  Weight: 50 kg

DRUGS (12)
  1. IRINOTECAN HCL [Suspect]
     Indication: COLORECTAL CANCER METASTATIC
     Dosage: 180 MG/M2, CYCLIC (ON DAY ONE EVERY 14 DAYS)
     Route: 042
     Dates: start: 20130617, end: 20130715
  2. FLUOROURACIL [Suspect]
     Indication: COLORECTAL CANCER METASTATIC
     Dosage: 400 MG/M2, CYCLIC (ON DAY ONE EVERY 14 DAYS)
     Route: 040
     Dates: start: 20130617, end: 20130717
  3. FLUOROURACIL [Suspect]
     Dosage: 2400 MG/M2, CYCLIC (ON DAYS ONE AND TWO EVERY 14 DAYS)
     Route: 042
     Dates: start: 20130617
  4. FOLINIC ACID [Suspect]
     Indication: COLORECTAL CANCER METASTATIC
     Dosage: 400 MG/M2, CYCLIC (ON DAY ONE EVERY 14 DAYS)
     Route: 042
     Dates: start: 20130617, end: 20130715
  5. BLINDED THERAPY [Suspect]
     Indication: COLORECTAL CANCER METASTATIC
     Dosage: UNK
     Route: 042
     Dates: start: 20130617, end: 20130729
  6. SODIUM CHLORIDE [Concomitant]
     Indication: DIARRHOEA
     Dosage: UNK
     Dates: start: 20130725, end: 20130726
  7. SODIUM CHLORIDE [Concomitant]
     Indication: DEHYDRATION
  8. GLUCOSE [Concomitant]
     Indication: DIARRHOEA
     Dosage: UNK, INFUSION
     Dates: start: 20130725, end: 20130726
  9. GLUCOSE [Concomitant]
     Indication: DEHYDRATION
  10. METAMIZOLE SODIUM [Concomitant]
     Indication: PYREXIA
     Dosage: UNK
     Dates: start: 20130725, end: 20130726
  11. POTASSIUM CHLORIDE [Concomitant]
     Indication: HYPOKALAEMIA
     Dosage: UNK
     Dates: start: 20130725, end: 20130726
  12. POTASSIUM CHLORIDE [Concomitant]
     Indication: PROPHYLAXIS

REACTIONS (2)
  - Death [Fatal]
  - Clostridium difficile colitis [Not Recovered/Not Resolved]
